FAERS Safety Report 4804461-5 (Version None)
Quarter: 2005Q4

REPORT INFORMATION
  Report Type: 
  Country: None (occurrence: None)
  Receive Date: 20051014
  Receipt Date: 20051004
  Transmission Date: 20060501
  Serious: Yes (Other)
  Sender: FDA-Public Use
  Company Number: 2005137457

PATIENT
  Age: 62 Year
  Sex: Male
  Weight: 106.5953 kg

DRUGS (13)
  1. LIPITOR [Suspect]
     Indication: ILL-DEFINED DISORDER
     Dosage: 10 MG (10 MG, 1 IN 1D),
  2. MEVACOR [Suspect]
     Indication: ILL-DEFINED DISORDER
  3. ISOSORBIDE (ISOSORBIDE) [Concomitant]
  4. NITROQUICK (GLYCERYL TRINITRATE) [Concomitant]
  5. BENICAR [Concomitant]
  6. FUROSEMIDE [Concomitant]
  7. POTASSIUM CHLORIDE [Concomitant]
  8. NIFEDIPINE [Concomitant]
  9. DIAZEPAM [Concomitant]
  10. METFORMIN (METFORMIN) [Concomitant]
  11. PLAVIX [Concomitant]
  12. METOPROLOL TARTRATE [Concomitant]
  13. ALCOHOL (ETHANOL) [Suspect]
     Indication: ILL-DEFINED DISORDER

REACTIONS (8)
  - ASTHENIA [None]
  - COMMUNICATION DISORDER [None]
  - FEELING ABNORMAL [None]
  - HYPOAESTHESIA [None]
  - NERVOUS SYSTEM DISORDER [None]
  - QUADRUPLE VESSEL BYPASS GRAFT [None]
  - SPEECH DISORDER [None]
  - THINKING ABNORMAL [None]
